FAERS Safety Report 7990869-6 (Version None)
Quarter: 2011Q4

REPORT INFORMATION
  Report Type: 
  Country: None (occurrence: None)
  Receive Date: 20111219
  Receipt Date: 20111209
  Transmission Date: 20120403
  Serious: Yes (Hospitalization, Other)
  Sender: FDA-Public Use
  Company Number: DE-ROCHE-1014955

PATIENT
  Sex: Male
  Weight: 54 kg

DRUGS (7)
  1. MABTHERA [Suspect]
     Indication: CHRONIC LYMPHOCYTIC LEUKAEMIA
     Route: 042
     Dates: start: 20110428, end: 20110606
  2. ALLOPURINOL [Concomitant]
     Indication: PROPHYLAXIS
     Route: 048
     Dates: start: 20110131, end: 20110606
  3. PREDNISOLONE SODIUM SUCCINATE INJ [Concomitant]
     Indication: PROPHYLAXIS
     Route: 042
     Dates: start: 20110428, end: 20110606
  4. BENDAMUSTINE [Suspect]
     Indication: CHRONIC LYMPHOCYTIC LEUKAEMIA
     Route: 042
     Dates: start: 20110131, end: 20110607
  5. KEVATRIL [Concomitant]
     Indication: PROPHYLAXIS
     Route: 042
     Dates: start: 20110131, end: 20110607
  6. RANITIDINE HCL [Concomitant]
     Indication: PROPHYLAXIS
     Route: 042
     Dates: start: 20110121, end: 20110606
  7. FENISTIL [Concomitant]
     Indication: PROPHYLAXIS
     Route: 042
     Dates: start: 20110131, end: 20110606

REACTIONS (3)
  - LUNG INFILTRATION [None]
  - ALVEOLITIS [None]
  - INTERSTITIAL LUNG DISEASE [None]
